FAERS Safety Report 4855951-0 (Version None)
Quarter: 2005Q4

REPORT INFORMATION
  Report Type: 
  Country: None (occurrence: None)
  Receive Date: 20051214
  Receipt Date: 20051207
  Transmission Date: 20060501
  Serious: No
  Sender: FDA-Public Use
  Company Number: US-2005-023529

PATIENT
  Age: 24 Year
  Sex: Female
  Weight: 136.1 kg

DRUGS (1)
  1. MIRENA [Suspect]
     Indication: CONTRACEPTION
     Dosage: 20 ?G/DAY, CONT, INTRA-UTERINE
     Route: 015
     Dates: start: 20050502

REACTIONS (3)
  - COMPLICATION OF DEVICE INSERTION [None]
  - COMPLICATION OF DEVICE REMOVAL [None]
  - DEVICE MIGRATION [None]
